FAERS Safety Report 21699805 (Version 3)
Quarter: 2023Q1

REPORT INFORMATION
  Report Type: Report from Study
  Country: EC (occurrence: EC)
  Receive Date: 20221208
  Receipt Date: 20230120
  Transmission Date: 20230417
  Serious: Yes (Death, Other)
  Sender: FDA-Public Use
  Company Number: EC-BAYER-2022A165534

PATIENT
  Age: 73 Year
  Sex: Female

DRUGS (1)
  1. NEXAVAR [Suspect]
     Active Substance: SORAFENIB
     Indication: Hepatocellular carcinoma
     Dosage: 800 MG DAILY
     Dates: start: 20220409, end: 20221117

REACTIONS (5)
  - Hepatocellular carcinoma [Fatal]
  - Food refusal [None]
  - Aphasia [None]
  - Asthenia [None]
  - Illness [None]

NARRATIVE: CASE EVENT DATE: 20221118
